FAERS Safety Report 16811381 (Version 2)
Quarter: 2019Q3

REPORT INFORMATION
  Report Type: Spontaneous
  Country: CH (occurrence: CH)
  Receive Date: 20190916
  Receipt Date: 20190920
  Transmission Date: 20191005
  Serious: Yes (Hospitalization)
  Sender: FDA-Public Use
  Company Number: CH-UCBSA-2019038361

PATIENT
  Age: 80 Year
  Sex: Female
  Weight: 59.9 kg

DRUGS (1)
  1. NEUPRO [Suspect]
     Active Substance: ROTIGOTINE
     Indication: TREMOR
     Dosage: APPLIED 6 PATCHES OF 4 MG AT ONCE
     Route: 062
     Dates: start: 20190824, end: 20190825

REACTIONS (6)
  - Hypokinesia [Recovered/Resolved]
  - Altered state of consciousness [Recovered/Resolved]
  - Vision blurred [Recovered/Resolved]
  - Product administration error [Unknown]
  - Asthenia [Recovered/Resolved]
  - Intentional product use issue [Unknown]

NARRATIVE: CASE EVENT DATE: 20190824
